FAERS Safety Report 23538966 (Version 2)
Quarter: 2024Q1

REPORT INFORMATION
  Report Type: Report from Study
  Country: US (occurrence: US)
  Receive Date: 20240219
  Receipt Date: 20240229
  Transmission Date: 20240410
  Serious: Yes (Hospitalization, Other)
  Sender: FDA-Public Use
  Company Number: US-ABBVIE-5642343

PATIENT
  Age: 76 Year
  Sex: Female

DRUGS (3)
  1. RINVOQ [Suspect]
     Active Substance: UPADACITINIB
     Indication: Ankylosing spondylitis
     Route: 048
     Dates: start: 20230213
  2. RINVOQ [Suspect]
     Active Substance: UPADACITINIB
     Indication: Ankylosing spondylitis
     Dosage: LAST ADMIN DATE 2023
     Route: 048
     Dates: start: 202301
  3. RINVOQ [Suspect]
     Active Substance: UPADACITINIB
     Indication: Ankylosing spondylitis
     Route: 048
     Dates: start: 202402

REACTIONS (9)
  - Intervertebral disc operation [Recovering/Resolving]
  - Wound [Recovering/Resolving]
  - Hypertension [Recovering/Resolving]
  - Inflammation [Recovering/Resolving]
  - Skin infection [Recovered/Resolved]
  - Eczema [Unknown]
  - Ulcer [Recovered/Resolved]
  - Acne [Recovered/Resolved]
  - Impaired healing [Recovered/Resolved]

NARRATIVE: CASE EVENT DATE: 20240201
